FAERS Safety Report 7212037-8 (Version None)
Quarter: 2010Q4

REPORT INFORMATION
  Report Type: 
  Country: None (occurrence: None)
  Receive Date: 20101229
  Receipt Date: 20101214
  Transmission Date: 20110411
  Serious: Yes (Hospitalization, Other)
  Sender: FDA-Public Use
  Company Number: 2010P1003302

PATIENT
  Sex: Male
  Weight: 111.1313 kg

DRUGS (3)
  1. COLCHICINE [Suspect]
     Indication: GOUT
     Dosage: 1.2 MG;QD;PO
     Route: 048
     Dates: start: 20081201
  2. CON MEDS [Concomitant]
  3. PREV MEDS [Concomitant]

REACTIONS (7)
  - ABDOMINAL PAIN UPPER [None]
  - GASTROINTESTINAL DISORDER [None]
  - HEPATIC NEOPLASM MALIGNANT [None]
  - HERNIA [None]
  - RENAL DISORDER [None]
  - SUTURE RUPTURE [None]
  - WEIGHT DECREASED [None]
